FAERS Safety Report 17503017 (Version 1)
Quarter: 2020Q1

REPORT INFORMATION
  Report Type: Spontaneous
  Country: US (occurrence: US)
  Receive Date: 20200305
  Receipt Date: 20200305
  Transmission Date: 20200409
  Serious: No
  Sender: FDA-Public Use
  Company Number: US-ROCHE-2284038

PATIENT
  Sex: Female

DRUGS (1)
  1. XOLAIR [Suspect]
     Active Substance: OMALIZUMAB
     Indication: URTICARIA
     Route: 065

REACTIONS (3)
  - Alopecia [Recovered/Resolved]
  - Urticaria [Recovered/Resolved with Sequelae]
  - Joint swelling [Recovered/Resolved]

NARRATIVE: CASE EVENT DATE: 201803
